FAERS Safety Report 7456531-3 (Version None)
Quarter: 2011Q2

REPORT INFORMATION
  Report Type: 
  Country: None (occurrence: None)
  Receive Date: 20110503
  Receipt Date: 20110502
  Transmission Date: 20111010
  Serious: Yes (Life-Threatening, Other)
  Sender: FDA-Public Use
  Company Number: JP-PFIZER INC-2011081842

PATIENT
  Age: 59 Year
  Sex: Male
  Weight: 65.2 kg

DRUGS (12)
  1. LYRICA [Suspect]
     Indication: PAIN IN EXTREMITY
     Dosage: 25 MG, 1X/DAY
     Route: 048
     Dates: start: 20110329, end: 20110406
  2. SEVELAMER HYDROCHLORIDE [Concomitant]
     Indication: HYPERPHOSPHATAEMIA
     Dosage: 250 MG, UNK
     Route: 048
     Dates: start: 20110224, end: 20110304
  3. PARIET [Concomitant]
     Indication: GASTRIC ULCER
     Dosage: 10 MG, 1X/DAY
     Route: 048
     Dates: start: 20110225
  4. AMIKACIN SULFATE [Concomitant]
     Indication: URINARY TRACT INFECTION
     Dosage: 200 MG, ALTERNATE DAY
     Route: 042
     Dates: start: 20110318, end: 20110330
  5. LENDORMIN [Concomitant]
     Indication: INSOMNIA
     Dosage: 0.25 MG, 1X/DAY
     Route: 048
     Dates: start: 20110224, end: 20110322
  6. LENDORMIN [Concomitant]
     Dosage: 0.25 MG, 2X/DAY
     Route: 048
     Dates: start: 20110323, end: 20110406
  7. ADALAT CC [Concomitant]
     Dosage: 20 MG, 2X/DAY ON THE DAY OF NO DIALYSIS
     Dates: start: 20110224
  8. MICARDIS [Concomitant]
     Indication: HYPERTENSION
     Dosage: 40 MG, 1X/DAY
     Route: 048
     Dates: start: 20110224
  9. KALIMATE [Concomitant]
     Indication: HYPERKALAEMIA
     Dosage: 5 G, 3X/DAY
     Route: 048
     Dates: start: 20110224, end: 20110226
  10. ADALAT CC [Concomitant]
     Indication: HYPERTENSION
     Dosage: 20 MG, DAILY ON THE DAY OF DIALYSIS
     Route: 048
     Dates: start: 20110224
  11. METHYCOBAL [Concomitant]
     Indication: NEUROPATHY PERIPHERAL
     Dosage: 500 UG, 3X/DAY
     Route: 048
     Dates: start: 20110307
  12. CALTAN [Concomitant]
     Indication: HYPERPHOSPHATAEMIA
     Dosage: 500 MG, 3X/DAY
     Route: 048
     Dates: start: 20110224

REACTIONS (3)
  - CARBON DIOXIDE INCREASED [None]
  - SOMNOLENCE [None]
  - APNOEA [None]
